FAERS Safety Report 6012334-8 (Version None)
Quarter: 2008Q4

REPORT INFORMATION
  Report Type: 
  Country: None (occurrence: None)
  Receive Date: 20081218
  Receipt Date: 20080814
  Transmission Date: 20090506
  Serious: No
  Sender: FDA-Public Use
  Company Number: US-ASTRAZENECA-2008UW16588

PATIENT
  Age: 55 Year
  Sex: Female
  Weight: 59 kg

DRUGS (2)
  1. SYMBICORT [Suspect]
     Indication: EMPHYSEMA
     Dosage: 80/4.5 MCG, 2 INHALATIONS BID
     Route: 055
     Dates: start: 20080813
  2. PREDNISONE TAB [Concomitant]

REACTIONS (1)
  - CHEST DISCOMFORT [None]
